FAERS Safety Report 12454394 (Version 2)
Quarter: 2016Q3

REPORT INFORMATION
  Report Type: Report from Study
  Country: US (occurrence: US)
  Receive Date: 20160610
  Receipt Date: 20160706
  Transmission Date: 20161109
  Serious: Yes (Other)
  Sender: FDA-Public Use
  Company Number: US-ASTRAZENECA-2015SE22746

PATIENT
  Age: 17093 Day
  Sex: Female

DRUGS (1)
  1. LYNPARZA [Suspect]
     Active Substance: OLAPARIB
     Indication: OVARIAN CANCER
     Dosage: 50.0MG UNKNOWN
     Route: 048

REACTIONS (5)
  - Rash [Unknown]
  - Ovarian cancer recurrent [Unknown]
  - Nausea [Unknown]
  - Malignant neoplasm progression [Unknown]
  - Fatigue [Unknown]

NARRATIVE: CASE EVENT DATE: 20160322
